FAERS Safety Report 6434170-0 (Version None)
Quarter: 2009Q4

REPORT INFORMATION
  Report Type: 
  Country: None (occurrence: None)
  Receive Date: 20091110
  Receipt Date: 20091104
  Transmission Date: 20100525
  Serious: Yes (Hospitalization)
  Sender: FDA-Public Use
  Company Number: CA-AMGEN-QUU369944

PATIENT
  Sex: Male

DRUGS (17)
  1. ARANESP [Suspect]
     Indication: RENAL FAILURE CHRONIC
     Route: 058
     Dates: start: 20090406, end: 20090504
  2. MYCOPHENOLATE MOFETIL [Suspect]
     Route: 048
  3. TACROLIMUS [Concomitant]
     Route: 048
  4. UNSPECIFIED MEDICATION [Concomitant]
     Dates: start: 20090502
  5. ETHACRYNIC ACID [Concomitant]
     Route: 042
  6. METOLAZONE [Concomitant]
     Route: 048
  7. SODIUM CHLORIDE [Concomitant]
  8. CLOBAZAM [Concomitant]
  9. KEPPRA [Concomitant]
  10. TOPIRAMATE [Concomitant]
  11. LEVETIRACETAM [Concomitant]
  12. DOMPERIDONE [Concomitant]
     Route: 048
  13. OMEPRAZOLE [Concomitant]
  14. ENALAPRIL [Concomitant]
     Route: 048
  15. CALCITRIOL [Concomitant]
  16. FUROSEMIDE [Concomitant]
  17. ALDACTAZIDE [Concomitant]

REACTIONS (13)
  - APLASIA PURE RED CELL [None]
  - ASPIRATION [None]
  - BLOOD CULTURE POSITIVE [None]
  - CULTURE URINE POSITIVE [None]
  - DEVICE RELATED INFECTION [None]
  - ENTEROCOCCAL INFECTION [None]
  - PLATELET COUNT INCREASED [None]
  - PYREXIA [None]
  - RESPIRATORY DISTRESS [None]
  - RETICULOCYTOSIS [None]
  - STAPHYLOCOCCAL INFECTION [None]
  - THROMBOSIS [None]
  - WHEEZING [None]
